FAERS Safety Report 4911260-2 (Version None)
Quarter: 2006Q1

REPORT INFORMATION
  Report Type: 
  Country: None (occurrence: None)
  Receive Date: 20060113
  Receipt Date: 20050304
  Transmission Date: 20060701
  Serious: No
  Sender: FDA-Public Use
  Company Number: HQWYE010810MAR05

PATIENT
  Age: 67 Year
  Sex: Female
  Weight: 52.21 kg

DRUGS (4)
  1. PREMPRO [Suspect]
     Indication: VULVOVAGINAL DRYNESS
     Dosage: ORAL
     Route: 048
  2. ATIVAN [Concomitant]
  3. TRAZODONE HCL [Concomitant]
  4. UNSPECIFIED THYROID MEDICATION [Concomitant]

REACTIONS (1)
  - CRYING [None]
